FAERS Safety Report 13265399 (Version 1)
Quarter: 2017Q1

REPORT INFORMATION
  Report Type: Spontaneous
  Country: AU (occurrence: AU)
  Receive Date: 20170223
  Receipt Date: 20170223
  Transmission Date: 20170428
  Serious: Yes (Hospitalization)
  Sender: FDA-Public Use
  Company Number: AU-APOTEX-2017AP007010

PATIENT
  Age: 82 Year
  Sex: Female
  Weight: 67.8 kg

DRUGS (1)
  1. AMIODARONE [Suspect]
     Active Substance: AMIODARONE
     Indication: PRODUCT USED FOR UNKNOWN INDICATION
     Route: 065

REACTIONS (2)
  - Upper respiratory tract infection [Recovered/Resolved with Sequelae]
  - Gait disturbance [Recovering/Resolving]

NARRATIVE: CASE EVENT DATE: 20161001
